FAERS Safety Report 10241645 (Version 1)
Quarter: 2014Q2

REPORT INFORMATION
  Report Type: Spontaneous
  Country: IT (occurrence: IT)
  Receive Date: 20140617
  Receipt Date: 20140617
  Transmission Date: 20141212
  Serious: Yes (Other)
  Sender: FDA-Public Use
  Company Number: IT-WATSON-2014-12727

PATIENT
  Age: 75 Year
  Sex: Female
  Weight: 54 kg

DRUGS (3)
  1. ALENDRONIC ACID (UNKNOWN) [Suspect]
     Indication: OSTEOPOROSIS
     Dosage: 70 MG, 1/WEEK
     Route: 048
     Dates: start: 20070101, end: 20140509
  2. DIBASE [Concomitant]
     Indication: HYPOCALCAEMIA
     Dosage: 20 GTT DROP(S), UNK
     Route: 048
     Dates: start: 20140509, end: 20140530
  3. PLAQUENIL                          /00072602/ [Concomitant]
     Indication: BONE PAIN
     Dosage: 200 MG, UNK
     Route: 048
     Dates: start: 20140509, end: 20140530

REACTIONS (1)
  - Osteonecrosis [Recovering/Resolving]
